FAERS Safety Report 9129346 (Version 1)
Quarter: 2013Q1

REPORT INFORMATION
  Report Type: Spontaneous
  Country: US (occurrence: US)
  Receive Date: 20130228
  Receipt Date: 20130228
  Transmission Date: 20140127
  Serious: No
  Sender: FDA-Public Use
  Company Number: US-ABBOTT-13P-163-1037464-00

PATIENT
  Sex: Male
  Weight: 83.99 kg

DRUGS (5)
  1. ANDROGEL [Suspect]
     Indication: BLOOD TESTOSTERONE DECREASED
     Dosage: 2 PUMP ACTUATIONS DAILY
     Dates: start: 201211
  2. CRESTOR [Concomitant]
     Indication: BLOOD CHOLESTEROL INCREASED
  3. DILTIAZEM [Concomitant]
     Indication: ATRIAL FIBRILLATION
  4. RYTHMOL [Concomitant]
     Indication: ATRIAL FIBRILLATION
  5. BABY ASPIRIN [Concomitant]
     Indication: ATRIAL FIBRILLATION

REACTIONS (1)
  - Gynaecomastia [Not Recovered/Not Resolved]
